FAERS Safety Report 10083685 (Version 5)
Quarter: 2014Q3

REPORT INFORMATION
  Report Type: Spontaneous
  Country: US (occurrence: US)
  Receive Date: 20140417
  Receipt Date: 20140909
  Transmission Date: 20150326
  Serious: Yes (Other)
  Sender: FDA-Public Use
  Company Number: US-PFIZER INC-2014107380

PATIENT
  Sex: Female

DRUGS (1)
  1. LYRICA [Suspect]
     Active Substance: PREGABALIN
     Dosage: UNK

REACTIONS (7)
  - Spleen disorder [Unknown]
  - Disturbance in attention [Unknown]
  - Neoplasm malignant [Unknown]
  - Diabetic coma [Unknown]
  - Somnolence [Unknown]
  - Colon cancer [Unknown]
  - Weight increased [Unknown]
